FAERS Safety Report 5640691-0 (Version None)
Quarter: 2008Q1

REPORT INFORMATION
  Report Type: 
  Country: None (occurrence: None)
  Receive Date: 20080227
  Receipt Date: 20080215
  Transmission Date: 20080703
  Serious: Yes (Other)
  Sender: FDA-Public Use
  Company Number: US-WYE-H02712108

PATIENT
  Sex: Female

DRUGS (1)
  1. PREMPRO [Suspect]

REACTIONS (7)
  - ALOPECIA [None]
  - BREAST ENLARGEMENT [None]
  - DEPRESSION [None]
  - HYSTERECTOMY [None]
  - LIBIDO DECREASED [None]
  - LIBIDO INCREASED [None]
  - WEIGHT INCREASED [None]
